FAERS Safety Report 4978972-6 (Version None)
Quarter: 2006Q2

REPORT INFORMATION
  Report Type: 
  Country: None (occurrence: None)
  Receive Date: 20060417
  Receipt Date: 20060406
  Transmission Date: 20061013
  Serious: Yes (Other)
  Sender: FDA-Public Use
  Company Number: 2006049408

PATIENT
  Age: 29 Year
  Sex: Female

DRUGS (4)
  1. PREDNISONE TAB [Suspect]
     Indication: IMMUNOSUPPRESSION
  2. BETAMETHASONE [Suspect]
     Indication: HERPES GESTATIONIS
     Dosage: TOPICAL
     Route: 061
  3. POTASSIUM PERMANGANATE [Concomitant]
  4. ERYTHROMYCIN [Concomitant]

REACTIONS (6)
  - DRUG EXPOSURE DURING PREGNANCY [None]
  - GESTATIONAL DIABETES [None]
  - HERPES GESTATIONIS [None]
  - PREMATURE RUPTURE OF MEMBRANES [None]
  - THERAPY NON-RESPONDER [None]
  - TOOTH EXTRACTION [None]
